FAERS Safety Report 6222674-5 (Version None)
Quarter: 2009Q2

REPORT INFORMATION
  Report Type: 
  Country: None (occurrence: None)
  Receive Date: 20090609
  Receipt Date: 20090525
  Transmission Date: 20091009
  Serious: Yes (Hospitalization)
  Sender: FDA-Public Use
  Company Number: 22001M00SWE

PATIENT
  Age: 13 Year
  Sex: Female

DRUGS (1)
  1. SAIZEN [Suspect]
     Indication: GROWTH HORMONE DEFICIENCY
     Dosage: 1.75 MG, 1 IN 1 DAYS, SUBCUTANEOUS
     Route: 058

REACTIONS (2)
  - NEOPLASM RECURRENCE [None]
  - OPTIC NERVE GLIOMA [None]
